FAERS Safety Report 9882291 (Version 1)
Quarter: 2014Q1

REPORT INFORMATION
  Report Type: Report from Study
  Country: US (occurrence: US)
  Receive Date: 20140207
  Receipt Date: 20140207
  Transmission Date: 20141002
  Serious: Yes (Hospitalization)
  Sender: FDA-Public Use
  Company Number: US-PFIZER INC-2011195465

PATIENT
  Age: 51 Year
  Sex: Male
  Weight: 99 kg

DRUGS (7)
  1. BLINDED CELECOXIB [Suspect]
     Indication: ADENOCARCINOMA OF COLON
     Dosage: 400 MG, CYCLIC QD STARTING ON DAY 1 OF CYCLE 2 OF FOLFOX, CONTINUED TO 3 YEARS
     Route: 048
     Dates: start: 20110712
  2. BLINDED PLACEBO [Suspect]
     Indication: ADENOCARCINOMA OF COLON
     Dosage: 400 MG, CYCLIC QD STARTING ON DAY 1 OF CYCLE 2 OF FOLFOX, CONTINUED TO 3 YEARS
     Route: 048
     Dates: start: 20110712
  3. DEXAMETHASONE SODIUM PHOSPHATE [Suspect]
     Indication: PROPHYLAXIS OF NAUSEA AND VOMITING
  4. OXALIPLATIN [Suspect]
     Indication: ADENOCARCINOMA OF COLON
     Dosage: 85 MG/M2, CYCLIC OVER 2 HOURS ON DAY 1
     Route: 042
     Dates: start: 20110712
  5. LEUCOVORIN [Suspect]
     Indication: ADENOCARCINOMA OF COLON
     Dosage: 400 MG/M2, CYCLIC OVER 2 HOURS ON DAY 1
     Route: 042
     Dates: start: 20110712
  6. 5-FU [Suspect]
     Indication: ADENOCARCINOMA OF COLON
     Dosage: 400 MG/M2, CYCLIC IVP ON DAY 1
     Dates: start: 20110712
  7. 5-FU [Suspect]
     Dosage: 2400 MG/M2, CYCLIC OVER 46-48 HOURS ON DAY 1
     Route: 042
     Dates: start: 20110712

REACTIONS (2)
  - Agitation [Recovered/Resolved]
  - Mania [Recovered/Resolved]
